FAERS Safety Report 5452836-6 (Version None)
Quarter: 2007Q3

REPORT INFORMATION
  Report Type: 
  Country: None (occurrence: None)
  Receive Date: 20070914
  Receipt Date: 20070903
  Transmission Date: 20080115
  Serious: Yes (Other)
  Sender: FDA-Public Use
  Company Number: JP-ROCHE-490814

PATIENT
  Age: 13 Year
  Sex: Male
  Weight: 53 kg

DRUGS (5)
  1. TAMIFLU [Suspect]
     Route: 048
     Dates: start: 20070220, end: 20070220
  2. NIFLAN [Concomitant]
     Route: 048
     Dates: start: 20070220, end: 20070220
  3. MEDICON [Concomitant]
     Route: 048
     Dates: start: 20070220, end: 20070220
  4. NAUZELIN [Concomitant]
     Route: 048
     Dates: start: 20070220, end: 20070220
  5. CLEMASTINE FUMARATE [Concomitant]
     Dosage: DRUG REPORTED AS CLE-MAMALLET.
     Route: 048
     Dates: start: 20070220, end: 20070220

REACTIONS (3)
  - ABNORMAL BEHAVIOUR [None]
  - DELIRIUM [None]
  - HALLUCINATION [None]
